FAERS Safety Report 5825475-2 (Version None)
Quarter: 2008Q3

REPORT INFORMATION
  Report Type: 
  Country: None (occurrence: None)
  Receive Date: 20080725
  Receipt Date: 20080725
  Transmission Date: 20090109
  Serious: Yes (Life-Threatening, Hospitalization)
  Sender: FDA-Public Use
  Company Number: None

PATIENT
  Age: 76 Year
  Sex: Female
  Weight: 72 kg

DRUGS (2)
  1. LOVASTATIN [Suspect]
  2. SIMVASTATIN [Suspect]

REACTIONS (2)
  - RHABDOMYOLYSIS [None]
  - WRONG DRUG ADMINISTERED [None]
